FAERS Safety Report 4289635-7 (Version None)
Quarter: 2004Q1

REPORT INFORMATION
  Report Type: 
  Country: None (occurrence: None)
  Receive Date: 20040206
  Receipt Date: 20040204
  Transmission Date: 20041129
  Serious: Yes (Hospitalization)
  Sender: FDA-Public Use
  Company Number: CAP03000209

PATIENT
  Age: 72 Year
  Sex: Female
  Weight: 67.6 kg

DRUGS (4)
  1. ACTONEL [Suspect]
     Indication: OSTEOPOROSIS POSTMENOPAUSAL
     Dosage: 5 MG ONCE DAILY, ORAL
     Route: 048
     Dates: start: 20020101, end: 20031001
  2. ATENOLOL [Concomitant]
  3. ALTACE [Concomitant]
  4. HYDROCHLOROTHIAZIDE [Concomitant]

REACTIONS (2)
  - ARTHRALGIA [None]
  - SARCOMA [None]
